FAERS Safety Report 7680336-1 (Version None)
Quarter: 2011Q3

REPORT INFORMATION
  Report Type: 
  Country: None (occurrence: None)
  Receive Date: 20110812
  Receipt Date: 20110803
  Transmission Date: 20111222
  Serious: Yes (Other)
  Sender: FDA-Public Use
  Company Number: US-GLAXOSMITHKLINE-A0940437A

PATIENT
  Age: 84 Year
  Sex: Male

DRUGS (2)
  1. ALLEGRA [Suspect]
     Indication: HYPERSENSITIVITY
     Dosage: 180MG PER DAY
     Route: 048
     Dates: start: 20110711, end: 20110715
  2. DIGOXIN [Suspect]
     Indication: PRODUCT USED FOR UNKNOWN INDICATION
     Route: 065
     Dates: end: 20110715

REACTIONS (6)
  - TOXICITY TO VARIOUS AGENTS [None]
  - DECREASED APPETITE [None]
  - GASTROINTESTINAL DISORDER [None]
  - CHEST DISCOMFORT [None]
  - DRUG INTERACTION [None]
  - CHILLS [None]
